FAERS Safety Report 8849636 (Version 6)
Quarter: 2013Q4

REPORT INFORMATION
  Report Type: Report from Study
  Country: JP (occurrence: JP)
  Receive Date: 20121019
  Receipt Date: 20131113
  Transmission Date: 20140711
  Serious: Yes (Other)
  Sender: FDA-Public Use
  Company Number: JP-VERTEX PHARMACEUTICAL INC.-2012-023157

PATIENT
  Age: 52 Year
  Sex: Female

DRUGS (15)
  1. VX-950 (TELAPREVIR) [Suspect]
     Indication: CHRONIC HEPATITIS C
     Dosage: 1500 MG, QD
     Route: 048
     Dates: start: 20120827, end: 20121001
  2. VX-950 (TELAPREVIR) [Suspect]
     Dosage: 1000 MG, QD
     Route: 048
     Dates: start: 20121002, end: 20121008
  3. VX-950 (TELAPREVIR) [Suspect]
     Dosage: 1000 MG, QD
     Route: 048
     Dates: start: 20121016, end: 20121105
  4. VX-950 (TELAPREVIR) [Suspect]
     Dosage: 1500 MG, QD
     Route: 048
     Dates: start: 20121106, end: 20121126
  5. REBETOL [Suspect]
     Indication: CHRONIC HEPATITIS C
     Dosage: 400 MG / 200 MG, QOD
     Route: 048
     Dates: start: 20120827, end: 20120916
  6. REBETOL [Suspect]
     Dosage: 400 MG, QD
     Route: 048
     Dates: start: 20120917, end: 20121001
  7. REBETOL [Suspect]
     Dosage: 200 MG, QD
     Route: 048
     Dates: start: 20121016, end: 20121022
  8. REBETOL [Suspect]
     Dosage: 400 MG, QD
     Route: 048
     Dates: start: 20121023, end: 20130114
  9. REBETOL [Suspect]
     Dosage: 600 MG, QD
     Route: 048
     Dates: start: 20130115
  10. PEGINTERFERON ALFA-2B [Suspect]
     Indication: CHRONIC HEPATITIS C
     Dosage: 1.033 ?G/KG, WEEKLY
     Route: 058
     Dates: start: 20120827, end: 20121008
  11. PEGINTERFERON ALFA-2B [Suspect]
     Dosage: 1.033 ?G/KG, QW
     Route: 058
     Dates: start: 20121016, end: 20121105
  12. PEGINTERFERON ALFA-2B [Suspect]
     Dosage: 1.24 ?G/KG, QW
     Route: 058
     Dates: start: 20121106
  13. VOLTAREN [Concomitant]
     Dosage: 25 MG/ DAY, PRN
     Route: 054
     Dates: start: 20120828
  14. DIFLAL [Concomitant]
     Dosage: Q.S, PRN
     Route: 061
     Dates: start: 20120830
  15. ALLELOCK [Concomitant]
     Dosage: 10 MG, QD
     Route: 048
     Dates: start: 20120830, end: 20121008

REACTIONS (3)
  - Erythema [Recovered/Resolved]
  - Anaemia [Recovered/Resolved]
  - Eczema [Recovered/Resolved]
